FAERS Safety Report 8129562-8 (Version None)
Quarter: 2011Q4

REPORT INFORMATION
  Report Type: 
  Country: None (occurrence: None)
  Receive Date: 20111227
  Receipt Date: 20111128
  Transmission Date: 20120403
  Serious: No
  Sender: FDA-Public Use
  Company Number: PHEH2011US03072

PATIENT
  Sex: Female

DRUGS (6)
  1. AMRIX [Concomitant]
  2. GILENYA [Suspect]
     Indication: MULTIPLE SCLEROSIS
     Dosage: 0.5 MG, DAILY, ORAL
     Route: 048
     Dates: start: 20110705
  3. COPAXONE [Concomitant]
  4. VITAMIN B12 [Concomitant]
  5. CLONIDINE [Concomitant]
  6. LORCET-HD [Concomitant]

REACTIONS (1)
  - CARPAL TUNNEL SYNDROME [None]
